FAERS Safety Report 4308080-9 (Version None)
Quarter: 2004Q1

REPORT INFORMATION
  Report Type: 
  Country: None (occurrence: None)
  Receive Date: 20040301
  Receipt Date: 20030429
  Transmission Date: 20041129
  Serious: No
  Sender: FDA-Public Use
  Company Number: US-BRISTOL-MYERS SQUIBB COMPANY-12259396

PATIENT
  Age: 64 Year
  Sex: Male
  Weight: 111 kg

DRUGS (9)
  1. GLUCOPHAGE [Suspect]
     Indication: DIABETES MELLITUS
     Dosage: DOSE REGIMEN:  1000 MILLIGRAMS IN THE MORNING AND 1500 MILLIGRAMS IN THE EVENING
     Route: 048
  2. DARVOCET-N 100 [Concomitant]
  3. MECLIZINE [Concomitant]
  4. LORAZEPAM [Concomitant]
  5. CELEBREX [Concomitant]
  6. ZOCOR [Concomitant]
  7. PROTONIX [Concomitant]
  8. AVANDIA [Concomitant]
  9. GEMFIBROZIL [Concomitant]

REACTIONS (1)
  - BURNING SENSATION [None]
